FAERS Safety Report 8615808-6 (Version None)
Quarter: 2012Q3

REPORT INFORMATION
  Report Type: 
  Country: None (occurrence: None)
  Receive Date: 20120823
  Receipt Date: 20120817
  Transmission Date: 20120928
  Serious: Yes (Other)
  Sender: FDA-Public Use
  Company Number: IT-ROXANE LABORATORIES, INC.-2012-RO-01718RO

PATIENT
  Age: 22 Year
  Sex: Male

DRUGS (1)
  1. LEVETIRACETAM [Suspect]
     Indication: JUVENILE MYOCLONIC EPILEPSY
     Dosage: 2000 MG

REACTIONS (3)
  - LOSS OF LIBIDO [None]
  - ERECTILE DYSFUNCTION [None]
  - ANHEDONIA [None]
